FAERS Safety Report 11421364 (Version 1)
Quarter: 2015Q3

REPORT INFORMATION
  Report Type: Spontaneous
  Country: BR (occurrence: BR)
  Receive Date: 20150826
  Receipt Date: 20150826
  Transmission Date: 20151125
  Serious: Yes (Hospitalization)
  Sender: FDA-Public Use
  Company Number: PHHY2015BR099980

PATIENT
  Age: 38 Year
  Sex: Female

DRUGS (1)
  1. IMIPRAMINE [Suspect]
     Active Substance: IMIPRAMINE
     Indication: ANTIDEPRESSANT THERAPY
     Dosage: 50 MG, UNK
     Route: 065
     Dates: start: 1970

REACTIONS (5)
  - Cardiomyopathy [Recovered/Resolved]
  - Oedema peripheral [Recovered/Resolved]
  - Dyspnoea [Recovered/Resolved]
  - Fatigue [Recovered/Resolved]
  - Localised oedema [Recovered/Resolved]

NARRATIVE: CASE EVENT DATE: 197312
